FAERS Safety Report 4342968-8 (Version None)
Quarter: 2004Q1

REPORT INFORMATION
  Report Type: 
  Country: None (occurrence: None)
  Receive Date: 20040325
  Receipt Date: 20040223
  Transmission Date: 20041129
  Serious: No
  Sender: FDA-Public Use
  Company Number: USA030843040

PATIENT
  Age: 78 Year
  Sex: Female
  Weight: 47 kg

DRUGS (6)
  1. EVISTA [Suspect]
     Indication: OSTEOPOROSIS
     Dosage: 60 MG/1 DAY
     Dates: start: 19980501
  2. FORTEO [Suspect]
     Indication: OSTEOPOROSIS
     Dosage: 20 UG/DAY
     Dates: start: 20030701
  3. BENADRYL [Concomitant]
  4. VAGIFEM [Concomitant]
  5. TYLENOL [Concomitant]
  6. MIACALCIN [Concomitant]

REACTIONS (13)
  - ANAEMIA [None]
  - ARTHRALGIA [None]
  - ASTHENIA [None]
  - BACK DISORDER [None]
  - BONE DISORDER [None]
  - DIZZINESS [None]
  - DRY MOUTH [None]
  - FAECES DISCOLOURED [None]
  - FATIGUE [None]
  - FEELING ABNORMAL [None]
  - INJECTION SITE HAEMORRHAGE [None]
  - INSOMNIA [None]
  - NAUSEA [None]
